FAERS Safety Report 9287998 (Version 1)
Quarter: 2013Q2

REPORT INFORMATION
  Report Type: Report from Study
  Country: FR (occurrence: FR)
  Receive Date: 20130514
  Receipt Date: 20130514
  Transmission Date: 20140414
  Serious: Yes (Hospitalization)
  Sender: FDA-Public Use
  Company Number: FR-BRISTOL-MYERS SQUIBB COMPANY-18862094

PATIENT
  Age: 65 Year
  Sex: Female
  Weight: 47 kg

DRUGS (7)
  1. CARBOPLATIN [Suspect]
     Indication: OVARIAN CANCER
     Dosage: 27SEP2012-420MG
     Route: 042
     Dates: start: 20120827, end: 20121018
  2. PACLITAXEL [Suspect]
     Indication: OVARIAN CANCER
     Route: 042
     Dates: start: 20120927
  3. BEVACIZUMAB [Suspect]
     Indication: OVARIAN CANCER
     Route: 042
     Dates: start: 20120827, end: 20121018
  4. CEFTRIAXONE SODIUM [Concomitant]
  5. LIDOCAINE HCL [Concomitant]
  6. METRONIDAZOLE [Concomitant]
  7. AMIKACIN [Concomitant]

REACTIONS (2)
  - Infected lymphocele [Not Recovered/Not Resolved]
  - Inflammation [Not Recovered/Not Resolved]
